FAERS Safety Report 24985684 (Version 1)
Quarter: 2025Q1

REPORT INFORMATION
  Report Type: Spontaneous
  Country: US (occurrence: None)
  Receive Date: 20250217
  Receipt Date: 20250217
  Transmission Date: 20250409
  Serious: Yes (Other)
  Sender: FDA-CTU
  Company Number: None

PATIENT
  Age: 71 Year
  Sex: Female
  Weight: 76.95 kg

DRUGS (5)
  1. METHOCARBAMOL [Suspect]
     Active Substance: METHOCARBAMOL
     Indication: Myalgia
     Dosage: OTHER QUANTITY : 1 TABLET(S);?FREQUENCY : 4 TIMES A DAY;?
     Route: 048
     Dates: start: 20250216, end: 20250216
  2. LOSARTAN POTASSIUM [Concomitant]
     Active Substance: LOSARTAN POTASSIUM
  3. AMLODIPINE [Concomitant]
     Active Substance: AMLODIPINE BESYLATE
  4. ABILIFY MAINTENA [Concomitant]
     Active Substance: ARIPIPRAZOLE
  5. CALCIUM [Concomitant]
     Active Substance: CALCIUM

REACTIONS (3)
  - Nightmare [None]
  - Hallucination [None]
  - Drug interaction [None]

NARRATIVE: CASE EVENT DATE: 20250217
